FAERS Safety Report 8386579-6 (Version None)
Quarter: 2012Q2

REPORT INFORMATION
  Report Type: 
  Country: None (occurrence: None)
  Receive Date: 20120525
  Receipt Date: 20110919
  Transmission Date: 20120825
  Serious: No
  Sender: FDA-Public Use
  Company Number: US-GLAXOSMITHKLINE-A0945168A

PATIENT
  Sex: Male

DRUGS (1)
  1. VERAMYST [Suspect]
     Dosage: 2SPR PER DAY
     Route: 045
     Dates: start: 20110730

REACTIONS (3)
  - OROPHARYNGEAL PAIN [None]
  - PAIN [None]
  - HEADACHE [None]
